FAERS Safety Report 8471886-9 (Version None)
Quarter: 2012Q2

REPORT INFORMATION
  Report Type: 
  Country: None (occurrence: None)
  Receive Date: 20120627
  Receipt Date: 20120618
  Transmission Date: 20120825
  Serious: Yes (Hospitalization)
  Sender: FDA-Public Use
  Company Number: ES-JNJFOC-20120211462

PATIENT
  Age: 26 Year
  Sex: Female

DRUGS (7)
  1. LAMOTRIGINE [Concomitant]
     Indication: CONVULSION PROPHYLAXIS
     Route: 065
  2. PERPHENAZINE [Interacting]
     Indication: PSYCHOTIC DISORDER
     Route: 065
  3. PALIPERIDONE [Suspect]
     Route: 030
  4. CLORAZEPATE DIPOTASSIUM [Concomitant]
     Indication: ILL-DEFINED DISORDER
     Route: 065
  5. BIPERIDEN HYDROCHLORIDE TAB [Concomitant]
     Indication: PARKINSONISM
     Route: 065
  6. HALOPERIDOL [Interacting]
     Indication: PSYCHOTIC DISORDER
     Route: 065
  7. PALIPERIDONE [Suspect]
     Indication: SCHIZOPHRENIA
     Route: 030

REACTIONS (2)
  - NEUROLEPTIC MALIGNANT SYNDROME [None]
  - DRUG INTERACTION [None]
